FAERS Safety Report 24524582 (Version 1)
Quarter: 2024Q4

REPORT INFORMATION
  Report Type: Spontaneous
  Country: IN (occurrence: IN)
  Receive Date: 20241019
  Receipt Date: 20241019
  Transmission Date: 20250115
  Serious: Yes (Hospitalization)
  Sender: HETERO
  Company Number: IN-HETERO-HET2024IN03724

PATIENT
  Age: 54 Year
  Sex: Male
  Weight: 69 kg

DRUGS (5)
  1. IVABRADINE [Suspect]
     Active Substance: IVABRADINE
     Indication: Angina pectoris
     Dosage: 1 DOSAGE FORM, BID
     Route: 048
     Dates: start: 20241005
  2. SPIRONOLACTONE\TORSEMIDE [Suspect]
     Active Substance: SPIRONOLACTONE\TORSEMIDE
     Indication: Polyuria
     Dosage: UNK (1/2 TABLET)
     Route: 048
  3. PRAX [PRAMOCAINE HYDROCHLORIDE] [Concomitant]
     Indication: Angina unstable
     Dosage: UNK
     Route: 065
  4. ASPIRIN\ATORVASTATIN [Concomitant]
     Active Substance: ASPIRIN\ATORVASTATIN
     Indication: Myocardial infarction
     Dosage: UNK
     Route: 065
  5. CAMPHOR\GLYCERIN\MENTHOL\ZINC OXIDE [Concomitant]
     Active Substance: CAMPHOR\GLYCERIN\MENTHOL\ZINC OXIDE
     Indication: Hyperchlorhydria
     Dosage: UNK
     Route: 065
     Dates: start: 20241005

REACTIONS (1)
  - Heart rate increased [Not Recovered/Not Resolved]

NARRATIVE: CASE EVENT DATE: 20240812
